FAERS Safety Report 9000901 (Version 1)
Quarter: 2013Q1

REPORT INFORMATION
  Report Type: Spontaneous
  Country: US (occurrence: None)
  Receive Date: 20130103
  Receipt Date: 20130103
  Transmission Date: 20140127
  Serious: Yes (Hospitalization)
  Sender: FDA-Public Use
  Company Number: None

PATIENT
  Age: 75 Year
  Sex: Female

DRUGS (10)
  1. LISINOPRIL [Suspect]
     Indication: HYPERTENSION
     Route: 048
     Dates: start: 20120411, end: 20120711
  2. OXYCODONE/APAP [Concomitant]
  3. NITROFURANTOIN [Concomitant]
  4. ASPIRIN [Concomitant]
  5. ROSUVASTATIN [Concomitant]
  6. ACETAMINOPHEN [Concomitant]
  7. SITAGLIPTIN/METFORMIN [Concomitant]
  8. CHOLECALCIFEROL [Concomitant]
  9. DOCUSATE [Concomitant]
  10. SENNA [Concomitant]

REACTIONS (1)
  - Angioedema [None]
